FAERS Safety Report 9367678 (Version 2)
Quarter: 2014Q2

REPORT INFORMATION
  Report Type: Spontaneous
  Country: US (occurrence: US)
  Receive Date: 20130625
  Receipt Date: 20140416
  Transmission Date: 20141212
  Serious: Yes (Hospitalization, Other)
  Sender: FDA-Public Use
  Company Number: US-B.I. PHARMACEUTICALS,INC./RIDGEFIELD-2013-BI-17944BP

PATIENT
  Age: 79 Year
  Sex: Male
  Weight: 83.91 kg

DRUGS (16)
  1. PRADAXA [Suspect]
     Indication: ANTICOAGULANT THERAPY
     Route: 065
     Dates: start: 201011, end: 201204
  2. COUMADIN [Concomitant]
     Route: 065
  3. EFFIENT [Concomitant]
     Route: 065
  4. ASIA [Concomitant]
     Route: 065
  5. LISINOPRIL [Concomitant]
     Route: 065
  6. TOPRAL [Concomitant]
     Route: 065
  7. SIMVASTATIN [Concomitant]
     Route: 065
  8. FISH OIL [Concomitant]
     Route: 065
  9. TRILIPIX [Concomitant]
     Route: 065
  10. TESTOSTERONE [Concomitant]
     Route: 065
     Dates: start: 2005
  11. ROPINIROLE [Concomitant]
     Route: 065
     Dates: start: 1990
  12. FLEXERIL [Concomitant]
     Route: 065
     Dates: start: 2004
  13. RANEXA [Concomitant]
     Route: 065
     Dates: start: 1990, end: 2012
  14. IMDUR [Concomitant]
     Route: 065
     Dates: start: 2008, end: 2012
  15. CARDURA [Concomitant]
     Route: 065
     Dates: end: 2012
  16. TENORMIN [Concomitant]
     Route: 065
     Dates: end: 2012

REACTIONS (3)
  - Gastrointestinal haemorrhage [Unknown]
  - Myocardial infarction [Unknown]
  - Epistaxis [Unknown]
